FAERS Safety Report 6585579-6 (Version None)
Quarter: 2010Q1

REPORT INFORMATION
  Report Type: 
  Country: None (occurrence: None)
  Receive Date: 20100217
  Receipt Date: 20100215
  Transmission Date: 20100710
  Serious: Yes (Other)
  Sender: FDA-Public Use
  Company Number: GXKR2009DE10586

PATIENT
  Sex: Male

DRUGS (1)
  1. PENHEXAL (NGX) [Suspect]
     Indication: TONSILLITIS
     Dosage: 1 DF, TID
     Route: 048
     Dates: start: 20090813, end: 20090823

REACTIONS (7)
  - AGEUSIA [None]
  - DECREASED APPETITE [None]
  - EYELID DISORDER [None]
  - FACIAL PARESIS [None]
  - HERPES ZOSTER [None]
  - NEURODERMATITIS [None]
  - WEIGHT DECREASED [None]
